FAERS Safety Report 14054322 (Version 2)
Quarter: 2017Q4

REPORT INFORMATION
  Report Type: Spontaneous
  Country: US (occurrence: US)
  Receive Date: 20171006
  Receipt Date: 20171216
  Transmission Date: 20180321
  Serious: No
  Sender: FDA-Public Use
  Company Number: PHHY2017US145047

PATIENT
  Sex: Female

DRUGS (1)
  1. BSS [Suspect]
     Active Substance: CALCIUM CHLORIDE\MAGNESIUM CHLORIDE\POTASSIUM CHLORIDE\SODIUM ACETATE\SODIUM CHLORIDE\SODIUM CITRATE
     Indication: PRODUCT USED FOR UNKNOWN INDICATION
     Route: 031

REACTIONS (3)
  - Foreign body in eye [Unknown]
  - Wrong technique in product usage process [Unknown]
  - Product quality issue [Unknown]
